FAERS Safety Report 6359008-1 (Version None)
Quarter: 2009Q3

REPORT INFORMATION
  Report Type: 
  Country: None (occurrence: None)
  Receive Date: 20090917
  Receipt Date: 20090909
  Transmission Date: 20100115
  Serious: Yes (Hospitalization)
  Sender: FDA-Public Use
  Company Number: US-JNJCH-2009024358

PATIENT
  Age: 39 Year
  Sex: Female
  Weight: 44.5 kg

DRUGS (3)
  1. BENADRYL [Suspect]
     Indication: ANAESTHESIA
     Route: 042
     Dates: start: 20090901, end: 20090901
  2. TOPROL-XL [Concomitant]
     Indication: TACHYCARDIA
     Dosage: TEXT:12.5 MG TWICE
     Route: 048
  3. PREDNISONE [Concomitant]
     Indication: IMMUNE SYSTEM DISORDER
     Dosage: TEXT:12.5 MG ONCE
     Route: 048

REACTIONS (3)
  - CONVULSION [None]
  - HYPERSENSITIVITY [None]
  - OFF LABEL USE [None]
